FAERS Safety Report 8513076-7 (Version None)
Quarter: 2012Q3

REPORT INFORMATION
  Report Type: 
  Country: None (occurrence: None)
  Receive Date: 20120705
  Receipt Date: 20120621
  Transmission Date: 20120928
  Serious: Yes (Hospitalization, Other)
  Sender: FDA-Public Use
  Company Number: 2012MA007884

PATIENT
  Age: 70 Year
  Sex: Male

DRUGS (8)
  1. CETIRIZINE HCL [Concomitant]
  2. TRAMADOL HYDROCHLORIDE [Suspect]
     Indication: PRODUCT USED FOR UNKNOWN INDICATION
     Dates: start: 20120611
  3. METFORMIN HYDROCHLORIDE [Concomitant]
  4. KETOCONAZOLE [Concomitant]
  5. OMACOR [Concomitant]
  6. BISOPROLOL FUMARATE [Concomitant]
  7. SIMVASTATIN [Concomitant]
  8. LANSOPRAZOLE [Concomitant]

REACTIONS (3)
  - MALAISE [None]
  - DRUG INTOLERANCE [None]
  - BRADYCARDIA [None]
